FAERS Safety Report 7745964-3 (Version None)
Quarter: 2011Q3

REPORT INFORMATION
  Report Type: 
  Country: None (occurrence: None)
  Receive Date: 20110913
  Receipt Date: 20110907
  Transmission Date: 20111222
  Serious: Yes (Other)
  Sender: FDA-Public Use
  Company Number: US-AMGEN-USASP2011044711

PATIENT
  Age: 80 Year
  Sex: Female

DRUGS (18)
  1. CORTICOSTEROIDS [Concomitant]
  2. ALPRAZOLAM [Concomitant]
     Dosage: 0.25 MG, UNK
  3. RECLAST [Concomitant]
  4. FLONASE [Concomitant]
     Dosage: UNK
  5. EPOGEN [Concomitant]
  6. NPLATE [Suspect]
     Indication: IDIOPATHIC THROMBOCYTOPENIC PURPURA
     Dosage: 300 MUG, UNK
     Dates: start: 20090414, end: 20110302
  7. ATENOLOL [Concomitant]
     Dosage: 50 MG, UNK
  8. ATACAND [Concomitant]
     Dosage: 32 MG, UNK
  9. FOLIC ACID [Concomitant]
     Dosage: 1 MG, UNK
  10. M.V.I. [Concomitant]
  11. SYNTHROID [Concomitant]
     Dosage: 150 MU, QD
  12. AMLODIPINE [Concomitant]
     Dosage: 2.5 MG, UNK
  13. OMEPRAZOLE [Concomitant]
     Dosage: 20 MG, UNK
  14. IMMUNE GLOBULIN NOS [Concomitant]
     Dosage: UNK
     Route: 042
     Dates: start: 20110224, end: 20110622
  15. B12                                /00056201/ [Concomitant]
  16. ARICEPT [Concomitant]
     Dosage: UNK
  17. OSCAL 500 + D [Concomitant]
     Dosage: 2 DF, BID
  18. VITAMIN C                          /00008001/ [Concomitant]

REACTIONS (3)
  - THERAPEUTIC RESPONSE DECREASED [None]
  - DRUG INEFFECTIVE [None]
  - THROMBOCYTOPENIA [None]
